FAERS Safety Report 15132121 (Version 1)
Quarter: 2018Q3

REPORT INFORMATION
  Report Type: Spontaneous
  Country: SG (occurrence: SG)
  Receive Date: 20180711
  Receipt Date: 20180711
  Transmission Date: 20181010
  Serious: Yes (Other)
  Sender: FDA-Public Use
  Company Number: SG-BAUSCH-BL-2018-018945

PATIENT
  Age: 50 Year
  Sex: Male

DRUGS (1)
  1. PYRIDOSTIGMINE [Suspect]
     Active Substance: PYRIDOSTIGMINE
     Indication: HEREDITARY NEUROPATHIC AMYLOIDOSIS
     Route: 065

REACTIONS (1)
  - Therapy non-responder [Unknown]
